FAERS Safety Report 17867558 (Version 1)
Quarter: 2020Q2

REPORT INFORMATION
  Report Type: Spontaneous
  Country: AT (occurrence: AT)
  Receive Date: 20200605
  Receipt Date: 20200605
  Transmission Date: 20200714
  Serious: Yes (Hospitalization)
  Sender: FDA-Public Use
  Company Number: AT-BAUSCH-BL-2020-016258

PATIENT
  Age: 35 Year
  Sex: Female
  Weight: 97 kg

DRUGS (3)
  1. NORMHYDRAL [Suspect]
     Active Substance: ANHYDROUS DEXTROSE\SODIUM CHLORIDE\SODIUM CITRATE\POTASSIUM CHLORIDE
     Indication: PRODUCT USED FOR UNKNOWN INDICATION
     Route: 065
     Dates: start: 202001
  2. COLIDIMIN [Suspect]
     Active Substance: RIFAXIMIN
     Indication: PRODUCT USED FOR UNKNOWN INDICATION
     Route: 065
     Dates: start: 202001
  3. BIOFLORIN [ENTEROCOCCUS FAECIUM] [Suspect]
     Active Substance: ENTEROCOCCUS FAECIUM
     Indication: PRODUCT USED FOR UNKNOWN INDICATION
     Route: 065
     Dates: start: 202001

REACTIONS (2)
  - Pulmonary embolism [Unknown]
  - Deep vein thrombosis [Unknown]

NARRATIVE: CASE EVENT DATE: 20200115
